FAERS Safety Report 11980924 (Version 7)
Quarter: 2017Q1

REPORT INFORMATION
  Report Type: Report from Study
  Country: FR (occurrence: FR)
  Receive Date: 20160129
  Receipt Date: 20170329
  Transmission Date: 20170428
  Serious: Yes (Hospitalization, Other)
  Sender: FDA-Public Use
  Company Number: FR-INCYTE CORPORATION-2016IN000398

PATIENT
  Age: 65 Year
  Sex: Female
  Weight: 59 kg

DRUGS (18)
  1. PREVISCAN [Concomitant]
     Active Substance: FLUINDIONE
     Dosage: 0.25 MG, QD
     Route: 065
  2. EUPANTOL [Concomitant]
     Active Substance: PANTOPRAZOLE SODIUM
     Indication: PRODUCT USED FOR UNKNOWN INDICATION
     Dosage: UNK
  3. EUPANTOL [Concomitant]
     Active Substance: PANTOPRAZOLE SODIUM
     Dosage: 20 MG, QD
     Route: 065
  4. PROPRANOLOL [Concomitant]
     Active Substance: PROPRANOLOL HYDROCHLORIDE
     Indication: PRODUCT USED FOR UNKNOWN INDICATION
     Dosage: UNK
     Route: 065
  5. PROPRANOLOL [Concomitant]
     Active Substance: PROPRANOLOL HYDROCHLORIDE
     Dosage: 160 MG, EVERY 2 DAYS
     Route: 065
  6. PREVISCAN [Concomitant]
     Active Substance: FLUINDIONE
     Dosage: 0.25 MG, QD
     Route: 065
  7. PREVISCAN [Concomitant]
     Active Substance: FLUINDIONE
     Dosage: 0.25 MG, QD
     Route: 065
  8. EUPANTOL [Concomitant]
     Active Substance: PANTOPRAZOLE SODIUM
     Dosage: 20 MG, QD
     Route: 065
  9. JAKAVI [Suspect]
     Active Substance: RUXOLITINIB
     Indication: MYELOFIBROSIS
     Dosage: 15 MG, BID
     Route: 048
     Dates: start: 20110707
  10. PROPRANOLOL [Concomitant]
     Active Substance: PROPRANOLOL HYDROCHLORIDE
     Dosage: 160 MG, EVERY 2 DAYS
     Route: 065
  11. ALDACTONE [Concomitant]
     Active Substance: SPIRONOLACTONE
     Indication: PRODUCT USED FOR UNKNOWN INDICATION
     Dosage: 50 MG, EVEVRY 2 DAYS
     Route: 065
  12. PREVISCAN [Concomitant]
     Active Substance: FLUINDIONE
     Indication: PRODUCT USED FOR UNKNOWN INDICATION
     Dosage: UNK
  13. PREVISCAN [Concomitant]
     Active Substance: FLUINDIONE
     Dosage: 0.25 MG, QD
     Route: 065
  14. EUPANTOL [Concomitant]
     Active Substance: PANTOPRAZOLE SODIUM
     Dosage: 20 MG, QD
     Route: 065
  15. PROPRANOLOL [Concomitant]
     Active Substance: PROPRANOLOL HYDROCHLORIDE
     Dosage: 160 MG, EVERY 2 DAYS
     Route: 065
  16. PROPRANOLOL [Concomitant]
     Active Substance: PROPRANOLOL HYDROCHLORIDE
     Dosage: 160 MG, EVERY 2 DAYS
     Route: 065
  17. ALDACTONE [Concomitant]
     Active Substance: SPIRONOLACTONE
     Dosage: ALTERNATELY 50 AND 75 MG
     Route: 065
  18. EUPANTOL [Concomitant]
     Active Substance: PANTOPRAZOLE SODIUM
     Dosage: 20 MG, QD
     Route: 065

REACTIONS (15)
  - Eye discharge [Unknown]
  - Peripheral venous disease [Unknown]
  - Cholestasis [Unknown]
  - Alanine aminotransferase increased [Unknown]
  - Uveitis [Recovered/Resolved]
  - Conjunctival hyperaemia [Unknown]
  - Portal vein cavernous transformation [Unknown]
  - White blood cell count increased [Unknown]
  - Dyspnoea exertional [Not Recovered/Not Resolved]
  - Fluid retention [Unknown]
  - Balance disorder [Unknown]
  - Thrombocytopenia [Not Recovered/Not Resolved]
  - Biliary dilatation [Unknown]
  - Portal hypertension [Unknown]
  - Eye infection toxoplasmal [Recovered/Resolved with Sequelae]

NARRATIVE: CASE EVENT DATE: 201506
